FAERS Safety Report 6709298-8 (Version None)
Quarter: 2010Q2

REPORT INFORMATION
  Report Type: 
  Country: None (occurrence: None)
  Receive Date: 20100504
  Receipt Date: 20100428
  Transmission Date: 20101027
  Serious: Yes (Life-Threatening, Other)
  Sender: FDA-Public Use
  Company Number: CH-ELI_LILLY_AND_COMPANY-CH201004008322

PATIENT
  Sex: Female

DRUGS (2)
  1. HUMALOG [Suspect]
     Route: 064
     Dates: start: 20100201, end: 20100211
  2. HUMALOG MIX 75/25 [Suspect]
     Dosage: UNK, UNK
     Route: 064
     Dates: start: 20100208, end: 20100211

REACTIONS (3)
  - DRUG EXPOSURE DURING PREGNANCY [None]
  - ENDOTRACHEAL INTUBATION [None]
  - PREMATURE BABY [None]
